FAERS Safety Report 9950639 (Version 1)
Quarter: 2014Q1

REPORT INFORMATION
  Report Type: Spontaneous
  Country: MY (occurrence: MY)
  Receive Date: 20140304
  Receipt Date: 20140304
  Transmission Date: 20141002
  Serious: Yes (Hospitalization)
  Sender: FDA-Public Use
  Company Number: MY-IPSEN BIOPHARMACEUTICALS, INC.-2014-1022

PATIENT
  Age: 54 Year
  Sex: Female

DRUGS (1)
  1. BOTULINUM TOXIN TYPE A NOS [Suspect]
     Indication: MUSCLE SPASTICITY
     Dosage: 400 UNITS
     Route: 030
     Dates: start: 20131122, end: 20131122

REACTIONS (5)
  - Pyrexia [Recovered/Resolved]
  - Swelling [Recovered/Resolved]
  - Erythema [Recovered/Resolved]
  - Neuralgia [Recovered/Resolved]
  - Injection site rash [Recovered/Resolved]
